FAERS Safety Report 6500238-3 (Version None)
Quarter: 2009Q4

REPORT INFORMATION
  Report Type: 
  Country: None (occurrence: None)
  Receive Date: 20091215
  Receipt Date: 20091215
  Transmission Date: 20100525
  Serious: No
  Sender: FDA-Public Use
  Company Number: None

PATIENT
  Age: 54 Year
  Sex: Male

DRUGS (1)
  1. DROTRECOGIN ALFA [Suspect]
     Dosage: 24 MCG/KG/HR

REACTIONS (1)
  - HAEMORRHAGE INTRACRANIAL [None]
